FAERS Safety Report 18790485 (Version 1)
Quarter: 2021Q1

REPORT INFORMATION
  Report Type: Other
  Country: VN (occurrence: VN)
  Receive Date: 20210126
  Receipt Date: 20210126
  Transmission Date: 20210419
  Serious: Yes (Death, Other)
  Sender: FDA-Public Use
  Company Number: VN-ROCHE-2753872

PATIENT

DRUGS (3)
  1. METHOTREXATE. [Suspect]
     Active Substance: METHOTREXATE
     Indication: DIFFUSE LARGE B-CELL LYMPHOMA
     Route: 042
  2. LEUCOVORINE [Concomitant]
     Active Substance: LEUCOVORIN
     Route: 042
  3. RITUXIMAB. [Suspect]
     Active Substance: RITUXIMAB
     Indication: DIFFUSE LARGE B-CELL LYMPHOMA
     Dosage: DAY 1 OR DAY 2 OR ANY TIME BUT NO LATER THAN 72 HOURS AFTER BEING TREATED WITH METHOTREXATE
     Route: 065

REACTIONS (22)
  - Cystitis haemorrhagic [Unknown]
  - Bladder disorder [Unknown]
  - Diarrhoea [Unknown]
  - Off label use [Unknown]
  - Intentional product use issue [Unknown]
  - Renal impairment [Unknown]
  - Mucosal inflammation [Unknown]
  - Leukopenia [Unknown]
  - Pneumonia [Fatal]
  - Skin infection [Unknown]
  - Vomiting [Unknown]
  - Neutropenia [Unknown]
  - Hepatitis [Unknown]
  - Urinary tract infection [Unknown]
  - Immobile [Unknown]
  - Oral disorder [Unknown]
  - Gastrointestinal disorder [Unknown]
  - Pharyngitis [Unknown]
  - Pallor [Unknown]
  - Sepsis [Fatal]
  - Agranulocytosis [Unknown]
  - Mouth ulceration [Unknown]
